FAERS Safety Report 7331611-1 (Version None)
Quarter: 2011Q1

REPORT INFORMATION
  Report Type: 
  Country: None (occurrence: None)
  Receive Date: 20110304
  Receipt Date: 20110225
  Transmission Date: 20110831
  Serious: Yes (Other)
  Sender: FDA-Public Use
  Company Number: CA-BAYER-2011-017968

PATIENT
  Sex: Female

DRUGS (1)
  1. MS PATHWAYS PATIENT SUPPORT PROGRAM BETAFERON [Suspect]
     Indication: MULTIPLE SCLEROSIS
     Dosage: UNK

REACTIONS (6)
  - MULTIPLE SCLEROSIS RELAPSE [None]
  - AFFECT LABILITY [None]
  - ASTHENIA [None]
  - SPLENOMEGALY [None]
  - AMNESIA [None]
  - INCONTINENCE [None]
